FAERS Safety Report 15553244 (Version 1)
Quarter: 2018Q4

REPORT INFORMATION
  Report Type: Report from Study
  Country: None (occurrence: AR)
  Receive Date: 20181026
  Receipt Date: 20181026
  Transmission Date: 20190205
  Serious: Yes (Other)
  Sender: FDA-Public Use
  Company Number: AR-ABBVIE-18K-007-2532273-00

PATIENT
  Age: 67 Year
  Sex: Female

DRUGS (1)
  1. HUMIRA [Suspect]
     Active Substance: ADALIMUMAB
     Indication: RHEUMATOID ARTHRITIS
     Route: 058
     Dates: start: 20180720

REACTIONS (8)
  - Skin fissures [Recovering/Resolving]
  - Fall [Unknown]
  - Pain in extremity [Unknown]
  - Inflammation [Unknown]
  - Muscle spasms [Recovering/Resolving]
  - Peripheral swelling [Unknown]
  - Pain in extremity [Unknown]
  - Foot deformity [Recovering/Resolving]

NARRATIVE: CASE EVENT DATE: 2018
